FAERS Safety Report 9322472 (Version 8)
Quarter: 2014Q3

REPORT INFORMATION
  Report Type: Spontaneous
  Country: US (occurrence: US)
  Receive Date: 20130531
  Receipt Date: 20140711
  Transmission Date: 20150326
  Serious: Yes (Hospitalization, Disabling, Other)
  Sender: FDA-Public Use
  Company Number: US-009507513-0808USA05314

PATIENT
  Sex: Female
  Weight: 52.62 kg

DRUGS (2)
  1. FOSAMAX [Suspect]
     Active Substance: ALENDRONATE SODIUM
     Dosage: 70 MG, QW
     Route: 048
     Dates: start: 20010730, end: 20080705
  2. FOSAMAX [Suspect]
     Active Substance: ALENDRONATE SODIUM
     Indication: OSTEOPENIA
     Dosage: 10 MG, QD
     Route: 048
     Dates: start: 19961021, end: 20010730

REACTIONS (95)
  - Fall [Recovered/Resolved]
  - Bone disorder [Unknown]
  - Urinary tract infection bacterial [Unknown]
  - Arthralgia [Unknown]
  - Medical device removal [Unknown]
  - Meniscal degeneration [Unknown]
  - Foot fracture [Recovered/Resolved]
  - Urinary tract infection [Unknown]
  - Uterine enlargement [Unknown]
  - Ear disorder [Unknown]
  - Pyelonephritis [Unknown]
  - Urinary tract infection [Unknown]
  - Sinus disorder [Unknown]
  - Radiculopathy [Unknown]
  - Pain in extremity [Unknown]
  - Pain in extremity [Unknown]
  - Femur fracture [Unknown]
  - Bone formation decreased [Unknown]
  - Foot fracture [Unknown]
  - Tympanic membrane perforation [Unknown]
  - Intervertebral disc protrusion [Unknown]
  - Kyphosis [Unknown]
  - Vitreous degeneration [Unknown]
  - Dry mouth [Unknown]
  - Scar pain [Unknown]
  - Bone pain [Unknown]
  - Neck pain [Unknown]
  - Stress fracture [Unknown]
  - Tonsillar disorder [Unknown]
  - Low turnover osteopathy [Unknown]
  - Anaemia [Unknown]
  - Ligament sprain [Unknown]
  - Fatigue [Unknown]
  - Lordosis [Unknown]
  - Pain in extremity [Unknown]
  - Joint injury [Unknown]
  - Foot fracture [Unknown]
  - Vaginal haemorrhage [Unknown]
  - Intervertebral disc degeneration [Unknown]
  - Seborrhoeic keratosis [Unknown]
  - Postmenopausal haemorrhage [Unknown]
  - Cataract cortical [Unknown]
  - Neuropathy peripheral [Unknown]
  - Dysphagia [Unknown]
  - Pain in extremity [Unknown]
  - Intramedullary rod insertion [Unknown]
  - Intramedullary rod insertion [Unknown]
  - Varicose vein [Unknown]
  - Arthralgia [Unknown]
  - Femur fracture [Recovered/Resolved]
  - Patellofemoral pain syndrome [Unknown]
  - Foot fracture [Unknown]
  - Breast disorder [Unknown]
  - Gait disturbance [Unknown]
  - Osteoarthritis [Unknown]
  - Inner ear disorder [Unknown]
  - Periodontal disease [Recovered/Resolved]
  - Oral disorder [Unknown]
  - Retinopathy [Unknown]
  - Vaginal infection [Unknown]
  - Carotid artery stenosis [Unknown]
  - Vitreous floaters [Unknown]
  - Tinnitus [Unknown]
  - Otitis media [Unknown]
  - Supraventricular tachycardia [Unknown]
  - Bursitis [Unknown]
  - Dry eye [Unknown]
  - Sinus headache [Unknown]
  - Adverse event [Unknown]
  - Arthralgia [Unknown]
  - Pain in extremity [Unknown]
  - Femur fracture [Unknown]
  - Limb injury [Unknown]
  - Femur fracture [Recovered/Resolved]
  - Gastric ulcer [Unknown]
  - Sjogren^s syndrome [Unknown]
  - Spinal column stenosis [Unknown]
  - Adverse event [Unknown]
  - Blood cholesterol increased [Unknown]
  - Hip fracture [Unknown]
  - Deafness [Unknown]
  - Carotid bruit [Unknown]
  - Cardiac murmur [Unknown]
  - Infected cyst [Unknown]
  - Arthritis [Unknown]
  - Polymyalgia rheumatica [Unknown]
  - Feeling hot [Unknown]
  - Back pain [Not Recovered/Not Resolved]
  - Device issue [Unknown]
  - Osteoporosis [Unknown]
  - Ear disorder [Unknown]
  - Osteoarthritis [Unknown]
  - Adverse event [Unknown]
  - Bursitis [Unknown]
  - Spinal disorder [Unknown]

NARRATIVE: CASE EVENT DATE: 2000
